FAERS Safety Report 14042079 (Version 1)
Quarter: 2017Q4

REPORT INFORMATION
  Report Type: Report from Study
  Country: US (occurrence: US)
  Receive Date: 20171004
  Receipt Date: 20171004
  Transmission Date: 20180321
  Serious: No
  Sender: FDA-Public Use
  Company Number: US-AMGEN-USASL2016152604

PATIENT
  Age: 73 Year
  Sex: Female

DRUGS (1)
  1. PROLIA [Suspect]
     Active Substance: DENOSUMAB
     Indication: OSTEOPOROSIS POSTMENOPAUSAL
     Dosage: 60 MG, Q6MO
     Route: 058
     Dates: start: 201604

REACTIONS (9)
  - Pain in jaw [Recovering/Resolving]
  - Bone pain [Recovering/Resolving]
  - Arthralgia [Recovering/Resolving]
  - Gastrointestinal disorder [Recovering/Resolving]
  - Abdominal discomfort [Recovering/Resolving]
  - Gastrooesophageal reflux disease [Unknown]
  - Flatulence [Unknown]
  - Abdominal distension [Unknown]
  - Pain in extremity [Recovering/Resolving]
